FAERS Safety Report 20170055 (Version 1)
Quarter: 2021Q4

REPORT INFORMATION
  Report Type: Spontaneous
  Country: AR (occurrence: AR)
  Receive Date: 20211210
  Receipt Date: 20211210
  Transmission Date: 20220303
  Serious: Yes (Hospitalization)
  Sender: FDA-Public Use
  Company Number: AR-PFIZER INC-202101368345

PATIENT
  Age: 54 Year
  Sex: Female

DRUGS (2)
  1. SUTENT [Suspect]
     Active Substance: SUNITINIB MALATE
     Indication: Metastatic renal cell carcinoma
     Dosage: STRENGTH 12.5 + 25 MG, DAILY (NO REST)
     Dates: start: 20171030
  2. SUTENT [Suspect]
     Active Substance: SUNITINIB MALATE
     Dosage: VARYING BETWEEN 25 MG ONCE DAILY AND THE OTHER DAY AT 37.5 MG, 1X/DAY

REACTIONS (4)
  - Osteomyelitis chronic [Not Recovered/Not Resolved]
  - Pigmentation disorder [Not Recovered/Not Resolved]
  - Off label use [Unknown]
  - Product use issue [Unknown]

NARRATIVE: CASE EVENT DATE: 20211101
